FAERS Safety Report 8590169-X (Version None)
Quarter: 2012Q3

REPORT INFORMATION
  Report Type: 
  Country: None (occurrence: None)
  Receive Date: 20120813
  Receipt Date: 20120809
  Transmission Date: 20120928
  Serious: Yes (Other)
  Sender: FDA-Public Use
  Company Number: IL-PFIZER INC-2012183538

PATIENT
  Age: 51 Year
  Sex: Male

DRUGS (1)
  1. VARENICLINE [Suspect]
     Dosage: STARTER PACK
     Dates: start: 20120724

REACTIONS (7)
  - ASTHENIA [None]
  - DYSPNOEA [None]
  - FEELING ABNORMAL [None]
  - SOMNOLENCE [None]
  - FATIGUE [None]
  - MOVEMENT DISORDER [None]
  - DIZZINESS [None]
